FAERS Safety Report 8394623 (Version 4)
Quarter: 2013Q1

REPORT INFORMATION
  Report Type: Spontaneous
  Country: US (occurrence: US)
  Receive Date: 20120207
  Receipt Date: 20130307
  Transmission Date: 20140127
  Serious: Yes (Other)
  Sender: FDA-Public Use
  Company Number: US-AMGEN-USASP2012007615

PATIENT
  Age: 81 Year
  Sex: Female

DRUGS (4)
  1. PROLIA [Suspect]
     Indication: OSTEOPOROSIS POSTMENOPAUSAL
     Dates: start: 201107
  2. PROLIA [Suspect]
     Indication: OSTEOPENIA
  3. VITAMIN D /00107901/ [Concomitant]
     Dosage: 400 IU, QD
  4. CALCIUM [Concomitant]

REACTIONS (1)
  - Femur fracture [Unknown]
